FAERS Safety Report 6476680-6 (Version None)
Quarter: 2009Q4

REPORT INFORMATION
  Report Type: 
  Country: None (occurrence: None)
  Receive Date: 20091204
  Receipt Date: 20091204
  Transmission Date: 20100525
  Serious: Yes (Hospitalization)
  Sender: FDA-Public Use
  Company Number: None

PATIENT
  Sex: Female
  Weight: 48.99 kg

DRUGS (1)
  1. MEMANTINE HCL [Suspect]
     Dosage: 380 MG

REACTIONS (6)
  - ASTHENIA [None]
  - FATIGUE [None]
  - MALNUTRITION [None]
  - METASTASES TO CENTRAL NERVOUS SYSTEM [None]
  - MOBILITY DECREASED [None]
  - SPINAL CORD COMPRESSION [None]
